FAERS Safety Report 19953770 (Version 1)
Quarter: 2021Q4

REPORT INFORMATION
  Report Type: Spontaneous
  Country: ES (occurrence: ES)
  Receive Date: 20211013
  Receipt Date: 20211013
  Transmission Date: 20220303
  Serious: Yes (Hospitalization, Other)
  Sender: FDA-Public Use
  Company Number: ES-VELOXIS PHARMACEUTICALS-2021VELES-000355

PATIENT

DRUGS (2)
  1. LOPINAVIR\RITONAVIR [Interacting]
     Active Substance: LOPINAVIR\RITONAVIR
     Indication: Product used for unknown indication
     Dosage: 1 DOSAGE FORM, QD
     Route: 048
     Dates: start: 2020, end: 2020
  2. ENVARSUS XR [Interacting]
     Active Substance: TACROLIMUS
     Indication: Immunosuppression
     Dosage: LOW DOSE
     Route: 065
     Dates: end: 2020

REACTIONS (5)
  - Acute kidney injury [Unknown]
  - Coronavirus infection [Unknown]
  - Drug level increased [Unknown]
  - Drug interaction [Unknown]
  - Off label use [Unknown]

NARRATIVE: CASE EVENT DATE: 20200101
